FAERS Safety Report 8469479 (Version 2)
Quarter: 2013Q1

REPORT INFORMATION
  Report Type: Spontaneous
  Country: US (occurrence: None)
  Receive Date: 20120316
  Receipt Date: 20121107
  Transmission Date: 20140127
  Serious: Yes (Hospitalization, Other)
  Sender: FDA-Public Use
  Company Number: ALK_01217_2010

PATIENT
  Age: 53 Year
  Sex: Female
  Weight: 97.5 kg

DRUGS (6)
  1. VIVITROL (VIVITROL_NDA) INJECTION, 380MG [Suspect]
     Indication: ALCOHOLISM
     Route: 030
     Dates: start: 20100115, end: 20100212
  2. LOTREL (AMLODIPINE BESILATE, BENAZEPRIL HYDROCHLORIDE) [Concomitant]
  3. LIPITOR (ATORVASTATIN CALCIUM) [Concomitant]
  4. BYSTOLE [Concomitant]
  5. CYMBALTA (DULOXETINE HYDROCHLORIDE) [Concomitant]
  6. DETROL (TOLTERODINE L-TARTRATE) [Concomitant]

REACTIONS (22)
  - Injection site abscess sterile [None]
  - Fat necrosis [None]
  - Skin lesion [None]
  - Pneumothorax [None]
  - Rib fracture [None]
  - Injection site abscess [None]
  - Injection site necrosis [None]
  - Fall [None]
  - Wrist fracture [None]
  - Avulsion fracture [None]
  - Contusion [None]
  - Osteoarthritis [None]
  - Synovitis [None]
  - Rotator cuff syndrome [None]
  - Sleep apnoea syndrome [None]
  - Upper respiratory tract infection [None]
  - Injection site reaction [None]
  - Injection site mass [None]
  - Polyarthritis [None]
  - Injection site swelling [None]
  - Injection site haematoma [None]
  - Injection site warmth [None]
